FAERS Safety Report 24778813 (Version 1)
Quarter: 2024Q4

REPORT INFORMATION
  Report Type: Spontaneous
  Country: CN (occurrence: CN)
  Receive Date: 20241226
  Receipt Date: 20241226
  Transmission Date: 20250115
  Serious: Yes (Other)
  Sender: PAREXEL
  Company Number: CN-SHANGHAI JUNSHI BIOSCIENCES CO., LTD.-CN2024012467

PATIENT

DRUGS (3)
  1. TORIPALIMAB [Suspect]
     Active Substance: TORIPALIMAB
     Indication: Sarcomatoid carcinoma of the lung
     Dosage: 240 MG, Q3W
     Route: 041
     Dates: start: 20200801, end: 20210225
  2. PEMETREXED [Concomitant]
     Active Substance: PEMETREXED
     Indication: Sarcomatoid carcinoma of the lung
     Dosage: 750 MG, Q3W
     Dates: start: 20200801
  3. CISPLATIN [Concomitant]
     Active Substance: CISPLATIN
     Indication: Sarcomatoid carcinoma of the lung
     Dosage: 110 MG, Q3W
     Dates: start: 20200801

REACTIONS (4)
  - Myelosuppression [Not Recovered/Not Resolved]
  - Hypothyroidism [Not Recovered/Not Resolved]
  - Pruritus [Not Recovered/Not Resolved]
  - Rash [Not Recovered/Not Resolved]

NARRATIVE: CASE EVENT DATE: 20220801
